FAERS Safety Report 23050443 (Version 5)
Quarter: 2025Q2

REPORT INFORMATION
  Report Type: Spontaneous
  Country: US (occurrence: US)
  Receive Date: 20231010
  Receipt Date: 20250514
  Transmission Date: 20250716
  Serious: No
  Sender: PFIZER
  Company Number: US-PFIZER INC-202300321002

PATIENT
  Age: 65 Year
  Sex: Female
  Weight: 71.67 kg

DRUGS (1)
  1. XELJANZ [Suspect]
     Active Substance: TOFACITINIB CITRATE
     Indication: Rheumatoid arthritis
     Dosage: 5 MG, 2X/DAY

REACTIONS (5)
  - Headache [Recovering/Resolving]
  - Dry mouth [Unknown]
  - Peripheral swelling [Unknown]
  - Oedema peripheral [Unknown]
  - Drug hypersensitivity [Unknown]
